FAERS Safety Report 7501244-2 (Version None)
Quarter: 2011Q2

REPORT INFORMATION
  Report Type: 
  Country: None (occurrence: None)
  Receive Date: 20110524
  Receipt Date: 20110119
  Transmission Date: 20111010
  Serious: Yes (Hospitalization)
  Sender: FDA-Public Use
  Company Number: RO-UCBSA-025788

PATIENT
  Sex: Female
  Weight: 68 kg

DRUGS (13)
  1. DIGOXIN [Concomitant]
     Indication: MYOCARDIAL INFARCTION
     Dosage: OTHER FIVE TIMES WEEKLY
  2. ROTIGOTINE [Suspect]
     Indication: PARKINSON'S DISEASE
     Dates: start: 20100811, end: 20100816
  3. ROTIGOTINE [Suspect]
     Dates: start: 20100829
  4. INDAPAMIDE [Concomitant]
     Indication: HYPERTENSION
  5. ASPENTER [Concomitant]
     Indication: MYOCARDIAL INFARCTION
     Dates: start: 20100811
  6. ROTIGOTINE [Suspect]
     Dates: start: 20100817, end: 20100822
  7. AMARYL [Concomitant]
     Indication: DIABETES MELLITUS
  8. LOSARTAN [Concomitant]
     Indication: HYPERTENSION
     Dates: start: 20100811
  9. CLONAZEPAM [Concomitant]
     Indication: RAPID EYE MOVEMENTS SLEEP ABNORMAL
     Dosage: 2 MG: OTHER HALF TABLET DAILY (IN THE EVENING)
     Dates: start: 20100811
  10. NEBIVOLOL HCL [Concomitant]
     Indication: HYPERTENSION
     Dates: start: 20100811
  11. ROTIGOTINE [Suspect]
     Dates: start: 20100823, end: 20100828
  12. PREDUCTAL [Concomitant]
     Indication: MYOCARDIAL INFARCTION
  13. MADOPAR [Concomitant]
     Indication: PARKINSON'S DISEASE

REACTIONS (1)
  - GASTRITIS [None]
